FAERS Safety Report 21182745 (Version 1)
Quarter: 2022Q3

REPORT INFORMATION
  Report Type: Spontaneous
  Country: US (occurrence: US)
  Receive Date: 20220808
  Receipt Date: 20220808
  Transmission Date: 20221026
  Serious: No
  Sender: FDA-Public Use
  Company Number: US-BIOVITRUM-2022US06592

PATIENT
  Sex: Male

DRUGS (2)
  1. KINERET [Suspect]
     Active Substance: ANAKINRA
     Indication: Rheumatoid arthritis
     Dates: start: 20220501
  2. KINERET [Suspect]
     Active Substance: ANAKINRA
     Dates: start: 202204

REACTIONS (6)
  - Inflammatory marker increased [Unknown]
  - Burning sensation [Unknown]
  - Ear infection [Unknown]
  - Dermatitis contact [Unknown]
  - Injection site rash [Unknown]
  - Product storage error [Unknown]
